FAERS Safety Report 23055401 (Version 1)
Quarter: 2023Q4

REPORT INFORMATION
  Report Type: Report from Study
  Country: ZA (occurrence: ZA)
  Receive Date: 20231011
  Receipt Date: 20231011
  Transmission Date: 20240109
  Serious: Yes (Other)
  Sender: FDA-Public Use
  Company Number: ZA-BAYER-2023A136344

PATIENT
  Age: 22 Month
  Sex: Male

DRUGS (8)
  1. MOXIFLOXACIN [Suspect]
     Active Substance: MOXIFLOXACIN
     Indication: Tuberculosis
  2. ISONIAZID [Concomitant]
     Active Substance: ISONIAZID
     Indication: Tuberculosis
  3. ETHIONAMIDE [Concomitant]
     Active Substance: ETHIONAMIDE
     Indication: Tuberculosis
  4. THIORIDAZINE [Concomitant]
     Active Substance: THIORIDAZINE
     Indication: Tuberculosis
  5. LINEZOLID [Concomitant]
     Active Substance: LINEZOLID
     Indication: Tuberculosis
  6. CAPREOMYCIN [Concomitant]
     Active Substance: CAPREOMYCIN
     Indication: Tuberculosis
  7. PAS [Concomitant]
     Active Substance: AMINOSALICYLIC ACID
     Indication: Tuberculosis
  8. CLOFAZIMINE [Concomitant]
     Active Substance: CLOFAZIMINE
     Indication: Tuberculosis

REACTIONS (3)
  - Intracranial pressure increased [Recovered/Resolved]
  - Off label use [None]
  - Product use issue [None]
